FAERS Safety Report 4462353-8 (Version None)
Quarter: 2004Q3

REPORT INFORMATION
  Report Type: 
  Country: None (occurrence: None)
  Receive Date: 20040924
  Receipt Date: 20040910
  Transmission Date: 20050211
  Serious: Yes (Disabling, Other)
  Sender: FDA-Public Use
  Company Number: 2004049431

PATIENT
  Age: 46 Year
  Sex: Male
  Weight: 104.3273 kg

DRUGS (3)
  1. GEODON [Suspect]
     Indication: SCHIZOPHRENIA, PARANOID TYPE
     Dosage: ORAL
     Route: 048
     Dates: start: 20010901, end: 20030923
  2. LORAZEPAM [Concomitant]
  3. SERTRALINE HCL [Concomitant]

REACTIONS (10)
  - ANXIETY [None]
  - CARDIAC ARREST [None]
  - CARDIAC PACEMAKER INSERTION [None]
  - CARDIOVASCULAR FUNCTION TEST ABNORMAL [None]
  - FALL [None]
  - FOOT FRACTURE [None]
  - FOOT OPERATION [None]
  - IMPAIRED WORK ABILITY [None]
  - LOSS OF CONSCIOUSNESS [None]
  - SYNCOPE [None]
